FAERS Safety Report 7030535-7 (Version None)
Quarter: 2010Q4

REPORT INFORMATION
  Report Type: 
  Country: None (occurrence: None)
  Receive Date: 20101006
  Receipt Date: 20100929
  Transmission Date: 20110411
  Serious: Yes (Life-Threatening, Other)
  Sender: FDA-Public Use
  Company Number: FR-ROCHE-600192

PATIENT
  Sex: Female
  Weight: 74 kg

DRUGS (20)
  1. BEVACIZUMAB [Suspect]
     Indication: BREAST CANCER
     Dosage: DOSAGE FORM: 15MG/KG, THERAPY PERMANENTLY DISCONTINUED. LAST DOSE PRIOR TO SAE: 06 NOV 2008.
     Route: 042
     Dates: start: 20081016, end: 20090115
  2. CYCLOPHOSPHAMIDE [Suspect]
     Indication: BREAST CANCER
     Route: 065
     Dates: start: 20081106, end: 20081106
  3. FLUOROURACIL [Suspect]
     Indication: BREAST CANCER
     Route: 065
     Dates: start: 20081106, end: 20081106
  4. EPIRUBICIN [Suspect]
     Indication: BREAST CANCER
     Dosage: TDD REPORTED AS 188/MG.
     Route: 065
     Dates: start: 20081106, end: 20081106
  5. PAROXETINE [Concomitant]
     Dates: start: 19850101
  6. PRAVASTATIN [Concomitant]
     Dosage: TDD REPORTED AS 20
     Dates: start: 19930101
  7. LEVOTHYROXINE SODIUM [Concomitant]
     Dosage: TDD REPORTED AS 75.
     Dates: start: 20050101
  8. APREPITANT [Concomitant]
     Dates: start: 20081016, end: 20081127
  9. PREDNISOLONE [Concomitant]
     Dates: start: 20081125, end: 20081127
  10. ROXITHROMYCINE [Concomitant]
     Dosage: TDD REPORTED AS 150.
     Dates: start: 20081125, end: 20081201
  11. VENTOLIN [Concomitant]
     Dosage: TDD REPORTED AS 6 BOTTLES. DRUG REPORTED AS VENTOLINE-SALBUTAMOL.
     Dates: start: 20081125, end: 20081201
  12. BECOTIDE [Concomitant]
     Dosage: TDD REPORTED AS 6 BOTTLES. DRUG REPORTED AS BECOTIDE 250 MG
     Dates: start: 20081125, end: 20081201
  13. METOPIMAZINE [Concomitant]
     Dates: start: 20081106, end: 20081109
  14. ZOFRAN [Concomitant]
     Dates: start: 20081106, end: 20081106
  15. SOLU-MEDROL [Concomitant]
     Dates: start: 20081106, end: 20081106
  16. DEXRAZOXANE [Concomitant]
     Dates: start: 20081106, end: 20081106
  17. BISOPROLOL [Concomitant]
     Dates: start: 19980101, end: 20081217
  18. SPIRONOLACTONE [Concomitant]
     Dates: start: 19980101, end: 20081217
  19. ALTIZIDE [Concomitant]
     Dates: start: 19980101, end: 20081217
  20. PARACETAMOL [Concomitant]

REACTIONS (3)
  - ATRIAL FIBRILLATION [None]
  - CARDIAC FAILURE [None]
  - LEFT VENTRICULAR DYSFUNCTION [None]
